FAERS Safety Report 13385769 (Version 1)
Quarter: 2017Q1

REPORT INFORMATION
  Report Type: Spontaneous
  Country: RO (occurrence: RO)
  Receive Date: 20170330
  Receipt Date: 20170330
  Transmission Date: 20170429
  Serious: Yes (Hospitalization)
  Sender: FDA-Public Use
  Company Number: RO-SUN PHARMACEUTICAL INDUSTRIES LTD-2017RR-136648

PATIENT
  Age: 25 Year
  Sex: Male

DRUGS (1)
  1. METOCLOPRAMIDE. [Suspect]
     Active Substance: METOCLOPRAMIDE
     Indication: NAUSEA
     Dosage: A TOTAL OF 9 TABLETS
     Route: 048

REACTIONS (4)
  - Angioedema [Recovering/Resolving]
  - Overdose [Recovering/Resolving]
  - Hypersensitivity [Recovering/Resolving]
  - Seizure [Recovering/Resolving]
